FAERS Safety Report 8772927 (Version 2)
Quarter: 2012Q4

REPORT INFORMATION
  Report Type: 
  Country: BR (occurrence: BR)
  Receive Date: 20120905
  Receipt Date: 20120911
  Transmission Date: 20130627
  Serious: Yes (Other)
  Sender: FDA-Public Use
  Company Number: BR-ELI_LILLY_AND_COMPANY-BR201209000295

PATIENT
  Sex: Female

DRUGS (1)
  1. BYETTA [Suspect]
     Indication: WEIGHT CONTROL
     Dosage: 5 ug, bid
     Route: 058
     Dates: start: 20120828

REACTIONS (6)
  - Syncope [Unknown]
  - Malaise [Unknown]
  - Off label use [Unknown]
  - Blood glucose fluctuation [Unknown]
  - Intentional drug misuse [Unknown]
  - Hypoglycaemia [Unknown]
